FAERS Safety Report 7799936-3 (Version None)
Quarter: 2011Q4

REPORT INFORMATION
  Report Type: 
  Country: None (occurrence: None)
  Receive Date: 20111006
  Receipt Date: 20111003
  Transmission Date: 20120403
  Serious: Yes (Other)
  Sender: FDA-Public Use
  Company Number: ES-TEVA-303372ISR

PATIENT
  Age: 39 Year
  Sex: Female

DRUGS (1)
  1. CETIRIZINE HCL [Suspect]
     Dosage: 10 MILLIGRAM;

REACTIONS (3)
  - HEPATOTOXICITY [None]
  - URTICARIA [None]
  - ARTHRALGIA [None]
